FAERS Safety Report 20338522 (Version 1)
Quarter: 2022Q1

REPORT INFORMATION
  Report Type: Spontaneous
  Country: US (occurrence: None)
  Receive Date: 20220116
  Receipt Date: 20220116
  Transmission Date: 20220423
  Serious: No
  Sender: FDA-Public Use
  Company Number: 2022A004644

PATIENT
  Age: 24715 Day
  Sex: Male
  Weight: 86.2 kg

DRUGS (1)
  1. FARXIGA [Suspect]
     Active Substance: DAPAGLIFLOZIN PROPANEDIOL
     Indication: Diabetes mellitus inadequate control
     Route: 048

REACTIONS (3)
  - Dizziness [Unknown]
  - Abdominal discomfort [Unknown]
  - Confusional state [Unknown]

NARRATIVE: CASE EVENT DATE: 20220103
